FAERS Safety Report 16858772 (Version 7)
Quarter: 2024Q2

REPORT INFORMATION
  Report Type: Spontaneous
  Country: US (occurrence: US)
  Receive Date: 20190926
  Receipt Date: 20240425
  Transmission Date: 20240716
  Serious: Yes (Other)
  Sender: FDA-Public Use
  Company Number: US-PFIZER INC-2019411017

PATIENT
  Age: 74 Year
  Sex: Male
  Weight: 108 kg

DRUGS (4)
  1. XELJANZ [Suspect]
     Active Substance: TOFACITINIB CITRATE
     Indication: Rheumatoid arthritis
     Dosage: 5 MG, 2X/DAY
     Dates: start: 201701
  2. XELJANZ [Suspect]
     Active Substance: TOFACITINIB CITRATE
     Dosage: 2 5 MG TWICE A DAY
  3. METHOTREXATE [Concomitant]
     Active Substance: METHOTREXATE
     Dosage: UNK
  4. FOLIC ACID [Concomitant]
     Active Substance: FOLIC ACID
     Dosage: UNK

REACTIONS (2)
  - Metastases to bone [Not Recovered/Not Resolved]
  - Chest pain [Unknown]
